FAERS Safety Report 8393943-8 (Version None)
Quarter: 2012Q2

REPORT INFORMATION
  Report Type: 
  Country: None (occurrence: None)
  Receive Date: 20120530
  Receipt Date: 20120521
  Transmission Date: 20120825
  Serious: Yes (Life-Threatening, Hospitalization)
  Sender: FDA-Public Use
  Company Number: AU-CELGENEUS-008-CCAZA-12043282

PATIENT
  Sex: Male
  Weight: 97.8 kg

DRUGS (22)
  1. TEMAZEPAM [Concomitant]
     Indication: INSOMNIA
     Dosage: 10 MILLIGRAM
     Route: 048
     Dates: start: 20120426
  2. POTASSIUM CHLORIDE [Concomitant]
     Dosage: 2400 MILLIGRAM
     Route: 048
     Dates: start: 20120505
  3. POSACONAZOLE [Concomitant]
     Indication: ANTIFUNGAL PROPHYLAXIS
     Dosage: 600 MILLIGRAM
     Route: 048
     Dates: start: 20120424
  4. FAMCICLOVIR [Concomitant]
     Indication: ANTIVIRAL PROPHYLAXIS
     Dosage: 1000 MILLIGRAM
     Route: 048
     Dates: start: 20120424
  5. TROPISETRON [Concomitant]
     Indication: NAUSEA
     Dosage: 5 MILLIGRAM
     Route: 041
     Dates: start: 20120426, end: 20120508
  6. POTASSIUM CHLORIDE [Concomitant]
     Indication: HYPOKALAEMIA
     Dosage: 1200 MILLIGRAM
     Route: 048
     Dates: start: 20120505, end: 20120505
  7. TIOTROPIUM [Concomitant]
     Indication: HYPOVENTILATION
     Dosage: 18 MICROGRAM
     Route: 055
     Dates: start: 20120423
  8. PRAVASTATIN [Concomitant]
     Dosage: 10 MILLIGRAM
     Route: 048
     Dates: start: 20120503
  9. AZACITIDINE [Suspect]
     Dosage: 75 MILLIGRAM/SQ. METER
     Route: 058
     Dates: start: 20120426, end: 20120428
  10. ATORVASTATIN CALCIUM [Concomitant]
     Dosage: 80 MILLIGRAM
     Route: 048
     Dates: start: 20070101, end: 20120430
  11. ACETAMINOPHEN [Concomitant]
     Indication: BACK PAIN
     Route: 048
     Dates: start: 20110101
  12. IRBESARTAN [Concomitant]
     Indication: HYPERTENSION
     Dosage: 150 MILLIGRAM
     Route: 048
     Dates: start: 20120502
  13. FLUTICASONE PROPIONATE/SALMETEROL [Concomitant]
     Indication: HYPOVENTILATION
     Dosage: 250/25MG
     Route: 055
     Dates: start: 20120423
  14. NORFLOXACIN [Concomitant]
     Indication: ANTIBIOTIC THERAPY
     Dosage: 800 MILLIGRAM
     Route: 048
     Dates: start: 20120424
  15. ALLOPURINOL [Concomitant]
     Dosage: 150 MILLIGRAM
     Route: 048
     Dates: start: 20120427, end: 20120507
  16. AMOXICILLIN AND CLAVULANATE POTASSIUM [Concomitant]
     Indication: LOWER RESPIRATORY TRACT INFECTION
     Dosage: 875/125MG
     Route: 048
     Dates: start: 20120509, end: 20120518
  17. MIDAZOLAM [Concomitant]
     Dosage: 2 MILLIGRAM
     Route: 041
     Dates: start: 20120419, end: 20120419
  18. FENTANYL-100 [Concomitant]
     Dosage: 100 MICROGRAM
     Route: 041
     Dates: start: 20120419, end: 20120419
  19. ALBUTEROL [Concomitant]
     Indication: PREMEDICATION
     Dosage: 2.5 MILLIGRAM
     Route: 055
     Dates: start: 20120419, end: 20120419
  20. IRBESARTAN AND HIDROCLOROTIAZIDA [Concomitant]
     Indication: HYPERTENSION
     Dosage: 300/12.5 MG
     Route: 048
     Dates: start: 20070101, end: 20120427
  21. METOCLOPRAMIDE [Concomitant]
     Indication: NAUSEA
     Route: 048
     Dates: start: 20120426
  22. PRAVASTAIN [Concomitant]
     Route: 048
     Dates: start: 20120503

REACTIONS (2)
  - ACUTE PULMONARY OEDEMA [None]
  - ACUTE MYOCARDIAL INFARCTION [None]
